FAERS Safety Report 14656180 (Version 1)
Quarter: 2018Q1

REPORT INFORMATION
  Report Type: Spontaneous
  Country: BR (occurrence: BR)
  Receive Date: 20180319
  Receipt Date: 20180319
  Transmission Date: 20180509
  Serious: Yes (Hospitalization)
  Sender: FDA-Public Use
  Company Number: BR-BAYER-2018-048235

PATIENT
  Age: 71 Year
  Sex: Female

DRUGS (2)
  1. NORIPURUM [Suspect]
     Active Substance: IRON POLYMALTOSE
  2. ASPIRINA 100 MG [Suspect]
     Active Substance: ASPIRIN
     Indication: CORONARY ARTERY DISEASE
     Dosage: 100 MG, QD
     Route: 048
     Dates: start: 20170922

REACTIONS (4)
  - Dizziness [None]
  - Nausea [None]
  - Iron deficiency anaemia [None]
  - Asthenia [None]

NARRATIVE: CASE EVENT DATE: 201712
